FAERS Safety Report 7375875-7 (Version None)
Quarter: 2011Q1

REPORT INFORMATION
  Report Type: 
  Country: None (occurrence: None)
  Receive Date: 20110325
  Receipt Date: 20110321
  Transmission Date: 20110831
  Serious: Yes (Death)
  Sender: FDA-Public Use
  Company Number: A0919748A

PATIENT
  Age: 70 Year
  Sex: Male

DRUGS (1)
  1. EPIVIR-HBV [Suspect]
     Indication: PRODUCT USED FOR UNKNOWN INDICATION
     Dosage: 100MG UNKNOWN
     Route: 065
     Dates: start: 20110303, end: 20110301

REACTIONS (1)
  - DEATH [None]
